FAERS Safety Report 4320788-8 (Version None)
Quarter: 2004Q1

REPORT INFORMATION
  Report Type: 
  Country: None (occurrence: None)
  Receive Date: 20040318
  Receipt Date: 20040305
  Transmission Date: 20041129
  Serious: Yes (Death, Hospitalization)
  Sender: FDA-Public Use
  Company Number: HQWYE621608MAR04

PATIENT
  Age: 76 Year
  Sex: Male

DRUGS (12)
  1. CORDARONE [Suspect]
     Dosage: 200 MG 5X PER 1 WK; ORAL, FEW YEARS
     Route: 048
     Dates: end: 20040125
  2. ALDACTONE [Suspect]
     Dosage: 12.5 MG 1X PER 1 DAY; ORAL
     Route: 048
     Dates: end: 20040112
  3. AUGMENTIN [Suspect]
     Dosage: 1000 MG 2X PER 1 DAY; INTRAVENOUS
     Route: 042
     Dates: start: 20040112, end: 20040117
  4. COVERSYL (PERINDOPRIL, ) [Suspect]
     Dosage: 4 MG 1X PER 1 DAY; ORAL
     Route: 048
     Dates: end: 20040112
  5. CARVEDILOL [Suspect]
     Dosage: 12.5 MG 2X PER 1 DAY; ORAL
     Route: 048
     Dates: end: 20040112
  6. LOVENOX [Suspect]
     Dosage: ONE DF ONCE DAILY; SC
     Route: 058
     Dates: start: 20040112, end: 20040119
  7. ACETAMINOPHEN [Concomitant]
  8. LEVOTHYROXINE SODIUM [Concomitant]
  9. LORAZEPAM [Concomitant]
  10. DIAFUSOR (GLYCERYL TRINITRATE) [Concomitant]
  11. LASIX [Concomitant]
  12. DI-ANTALVIC (DEXTROPROPOXYPHENE HYDROCHLORIDE/PARACETAMOL), [Concomitant]

REACTIONS (2)
  - CYTOLYTIC HEPATITIS [None]
  - HEPATIC FAILURE [None]
